FAERS Safety Report 5955121-9 (Version None)
Quarter: 2008Q4

REPORT INFORMATION
  Report Type: 
  Country: None (occurrence: None)
  Receive Date: 20081117
  Receipt Date: 20080108
  Transmission Date: 20090506
  Serious: No
  Sender: FDA-Public Use
  Company Number: US-AMGEN-KDL252298

PATIENT
  Sex: Female

DRUGS (9)
  1. ENBREL [Suspect]
     Indication: JUVENILE ARTHRITIS
     Route: 058
     Dates: start: 20061215
  2. DARVOCET-N 100 [Concomitant]
  3. SYNTHROID [Concomitant]
  4. ZYRTEC [Concomitant]
  5. ATENOLOL [Concomitant]
  6. SINGULAIR [Concomitant]
  7. HYDROCHLOROTHIAZIDE [Concomitant]
  8. EVISTA [Concomitant]
  9. IBUPROFEN TABLETS [Concomitant]

REACTIONS (1)
  - OCULAR HYPERAEMIA [None]
